FAERS Safety Report 24368091 (Version 1)
Quarter: 2024Q3

REPORT INFORMATION
  Report Type: Spontaneous
  Country: RO (occurrence: RO)
  Receive Date: 20240926
  Receipt Date: 20240926
  Transmission Date: 20241016
  Serious: Yes (Death, Other)
  Sender: AMGEN
  Company Number: RO-AMGEN-ROUSP2024187698

PATIENT
  Age: 34 Year
  Sex: Female

DRUGS (2)
  1. BEVACIZUMAB [Suspect]
     Active Substance: BEVACIZUMAB
     Indication: Cervix carcinoma stage IV
     Dosage: UNK
     Route: 065
     Dates: start: 2022
  2. PACLITAXEL [Concomitant]
     Active Substance: PACLITAXEL
     Indication: Cervix carcinoma stage IV
     Dosage: 175 MILLIGRAM/SQ. METER [TOTAL DOSE 300 MG]
     Route: 042
     Dates: start: 20220119

REACTIONS (26)
  - Death [Fatal]
  - Hydronephrosis [Unknown]
  - Cervical vertebral fracture [Unknown]
  - Spinal cord neoplasm [Unknown]
  - Spinal cord compression [Unknown]
  - Cachexia [Unknown]
  - Quadriparesis [Unknown]
  - Multisystem inflammatory syndrome [Unknown]
  - Terminal state [Unknown]
  - Thrombocytopenia [Unknown]
  - Mucosal dryness [Unknown]
  - Decubitus ulcer [Unknown]
  - Dermatitis contact [Unknown]
  - Onychomycosis [Unknown]
  - Rhonchi [Unknown]
  - Hypotonia [Unknown]
  - Depression [Unknown]
  - Anaemia macrocytic [Unknown]
  - Glomerular filtration rate decreased [Unknown]
  - Escherichia urinary tract infection [Unknown]
  - Panic attack [Unknown]
  - Frustration tolerance decreased [Unknown]
  - Insomnia [Unknown]
  - Anxiety [Unknown]
  - Dry skin [Unknown]
  - Constipation [Unknown]

NARRATIVE: CASE EVENT DATE: 20230320
